FAERS Safety Report 12767378 (Version 1)
Quarter: 2016Q3

REPORT INFORMATION
  Report Type: Spontaneous
  Country: US (occurrence: US)
  Receive Date: 20160915
  Receipt Date: 20160915
  Transmission Date: 20161109
  Serious: No
  Sender: FDA-Public Use
  Company Number: None

PATIENT
  Sex: Male

DRUGS (1)
  1. ARANESP [Suspect]
     Active Substance: DARBEPOETIN ALFA
     Indication: ANAEMIA
     Dosage: 60MCG/03ML WEEKLY SUBCUTANEOUSLY
     Route: 058
     Dates: start: 20160722, end: 20160812

REACTIONS (3)
  - Bone pain [None]
  - Arthralgia [None]
  - Weight increased [None]
